FAERS Safety Report 5246238-5 (Version None)
Quarter: 2007Q1

REPORT INFORMATION
  Report Type: 
  Country: None (occurrence: None)
  Receive Date: 20070221
  Receipt Date: 20070209
  Transmission Date: 20070707
  Serious: Yes (Death, Other)
  Sender: FDA-Public Use
  Company Number: GXKR2007SE01574

PATIENT
  Sex: Female

DRUGS (2)
  1. METFORMIN (NGX)(METFORMIN) TABLET, 500MG [Suspect]
     Indication: DIABETES MELLITUS NON-INSULIN-DEPENDENT
     Dosage: 500 MG, TID2SDO,ORAL
     Route: 048
  2. LINATIL (NGX)(ENALAPRIL MALEATE) TABLET, 2.5MG [Suspect]
     Indication: HYPERTENSION
     Dosage: ORAL
     Route: 048

REACTIONS (7)
  - HAEMODIALYSIS [None]
  - INCORRECT DOSE ADMINISTERED [None]
  - LACTIC ACIDOSIS [None]
  - PULMONARY OEDEMA [None]
  - RENAL FAILURE ACUTE [None]
  - SHOCK [None]
  - TACHYPNOEA [None]
